FAERS Safety Report 5661785-X (Version None)
Quarter: 2008Q1

REPORT INFORMATION
  Report Type: 
  Country: None (occurrence: None)
  Receive Date: 20080312
  Receipt Date: 20080305
  Transmission Date: 20080703
  Serious: Yes (Disabling)
  Sender: FDA-Public Use
  Company Number: GR-ASTRAZENECA-2008SE01242

PATIENT
  Sex: Female

DRUGS (3)
  1. XYLOCAINE GEL [Suspect]
     Indication: NEURALGIA
     Route: 061
  2. EMLA [Concomitant]
  3. ELOCON [Concomitant]

REACTIONS (1)
  - THERMAL BURN [None]
